FAERS Safety Report 6551924-0 (Version None)
Quarter: 2009Q4

REPORT INFORMATION
  Report Type: 
  Country: None (occurrence: None)
  Receive Date: 20091215
  Receipt Date: 20090107
  Transmission Date: 20100525
  Serious: Yes (Other)
  Sender: FDA-Public Use
  Company Number: FEI2009-0032

PATIENT
  Age: 29 Year
  Sex: Female
  Weight: 68.0396 kg

DRUGS (2)
  1. PARAGARD T 380A [Suspect]
     Indication: CONTRACEPTION
     Dosage: INTRA-UTERINE
     Route: 015
     Dates: start: 20081202, end: 20090107
  2. PRENATAL (ASCORBIC ACID, BIOTIN, TOCOPHEROL, NICOTINIC ACID, RETINOL, [Concomitant]

REACTIONS (4)
  - ABDOMINAL PAIN LOWER [None]
  - ADNEXA UTERI PAIN [None]
  - OVARIAN CYST [None]
  - UTERINE PERFORATION [None]
